FAERS Safety Report 10104667 (Version 1)
Quarter: 2014Q2

REPORT INFORMATION
  Report Type: Spontaneous
  Country: US (occurrence: US)
  Receive Date: 20140424
  Receipt Date: 20140424
  Transmission Date: 20141212
  Serious: Yes (Hospitalization, Other)
  Sender: FDA-Public Use
  Company Number: US-ABBVIE-14P-163-1226838-00

PATIENT
  Sex: Male
  Weight: 118.04 kg

DRUGS (15)
  1. ANDROGEL [Suspect]
     Indication: BLOOD TESTOSTERONE DECREASED
     Dosage: 6 PUMPS
     Route: 061
     Dates: start: 2010
  2. PROZAC [Concomitant]
     Indication: DEPRESSION
  3. OPENA [Concomitant]
     Indication: GASTROOESOPHAGEAL REFLUX DISEASE
  4. OPENA [Concomitant]
     Indication: PAIN
  5. LOPRESSOR [Concomitant]
     Indication: HYPERTENSION
  6. NORVASC [Concomitant]
     Indication: HYPERTENSION
  7. ADVAIR [Concomitant]
     Indication: ASTHMA
  8. ALBUTEROL [Concomitant]
     Indication: ASTHMA
  9. SYNTHROID [Concomitant]
     Indication: HYPOTHYROIDISM
  10. HYDROCORTISONE [Concomitant]
     Indication: ADRENAL DISORDER
  11. HYDROCORTISONE [Concomitant]
     Indication: ADRENAL INSUFFICIENCY
  12. ASPIRIN [Concomitant]
     Indication: ANTICOAGULANT THERAPY
  13. PERIACTIN [Concomitant]
     Indication: PRURITUS
  14. METFORMIN [Concomitant]
     Indication: WEIGHT CONTROL
  15. ATIVAN [Concomitant]
     Indication: ANXIETY

REACTIONS (14)
  - Cerebrovascular accident [Recovered/Resolved]
  - Lymphocele [Recovered/Resolved]
  - Transient ischaemic attack [Recovered/Resolved]
  - Loss of consciousness [Recovered/Resolved]
  - Myocardial infarction [Recovered/Resolved]
  - Chest pain [Recovered/Resolved]
  - Dyspnoea [Recovered/Resolved]
  - Muscular weakness [Recovered/Resolved]
  - Neoplasm skin [Not Recovered/Not Resolved]
  - Cyst [Not Recovered/Not Resolved]
  - Dysarthria [Recovered/Resolved]
  - Local swelling [Recovered/Resolved]
  - Testicular cyst [Not Recovered/Not Resolved]
  - Arteriospasm coronary [Recovered/Resolved]
